FAERS Safety Report 5874544-X (Version None)
Quarter: 2008Q3

REPORT INFORMATION
  Report Type: 
  Country: None (occurrence: None)
  Receive Date: 20080909
  Receipt Date: 20080902
  Transmission Date: 20090109
  Serious: Yes (Other)
  Sender: FDA-Public Use
  Company Number: PHEH2007US09718

PATIENT
  Sex: Male

DRUGS (5)
  1. ZOMETA [Suspect]
     Dosage: Q 3 MONTHS
     Dates: start: 20070101
  2. ZOMETA [Suspect]
     Dosage: EVERY SIX WEEKS
     Dates: start: 20080218
  3. TAXOTERE [Suspect]
     Dosage: EVERY SIX WEEKS
     Dates: start: 20080418
  4. KETOCONAZOLE [Concomitant]
     Dosage: UNK
     Dates: start: 20060101, end: 20070101
  5. LUPRON [Concomitant]
     Indication: PROSTATE CANCER
     Dosage: EVERY THREE MONTHS
     Dates: start: 20050401

REACTIONS (8)
  - DISEASE PROGRESSION [None]
  - FISTULA [None]
  - METASTASES TO BONE [None]
  - METASTASES TO LYMPH NODES [None]
  - PROSTATE CANCER METASTATIC [None]
  - PROSTATIC SPECIFIC ANTIGEN INCREASED [None]
  - TOOTH DISORDER [None]
  - TOOTH FRACTURE [None]
